FAERS Safety Report 9955902 (Version 2)
Quarter: 2014Q1

REPORT INFORMATION
  Report Type: Report from Study
  Country: US (occurrence: US)
  Receive Date: 20140304
  Receipt Date: 20140304
  Transmission Date: 20141002
  Serious: No
  Sender: FDA-Public Use
  Company Number: US-ABBVIE-13P-163-1066859-00

PATIENT
  Age: 59 Year
  Sex: Male

DRUGS (11)
  1. HUMIRA [Suspect]
     Indication: CROHN^S DISEASE
     Dates: start: 20130304
  2. HUMIRA [Suspect]
     Dates: start: 20130318
  3. HUMIRA [Suspect]
  4. ASACOL [Concomitant]
     Indication: CROHN^S DISEASE
     Dosage: 400MG X 4 THRICE TIMES A DAY= 4800MG
  5. VALSARTAN/HYDROCHLOORTHIAZIDE [Concomitant]
     Indication: HYPERTENSION
     Dosage: 320/125 MG DAILY
  6. XANAX [Concomitant]
     Indication: ANXIETY
     Dosage: 0.5 MG AS REQUIRED
  7. RANITIDINE [Concomitant]
     Indication: GASTROOESOPHAGEAL REFLUX DISEASE
     Dosage: 300 MG DAILY OR AS REQUIED
  8. SYMBICORT [Concomitant]
     Indication: ASTHMA
  9. DOCUSATE SODIUM [Concomitant]
     Indication: CROHN^S DISEASE
  10. SORIATANE [Concomitant]
     Indication: PSORIASIS
     Dosage: 25 MG AS REQUIRED
  11. ADVIL [Concomitant]
     Indication: PAIN
     Dosage: 200 MG AS REQUIRED

REACTIONS (4)
  - Injection site haemorrhage [Recovered/Resolved]
  - Injection site pain [Unknown]
  - Injection site bruising [Unknown]
  - Injection site bruising [Unknown]
